FAERS Safety Report 8615496-9 (Version None)
Quarter: 2012Q3

REPORT INFORMATION
  Report Type: 
  Country: None (occurrence: None)
  Receive Date: 20120823
  Receipt Date: 20120814
  Transmission Date: 20120928
  Serious: Yes (Life-Threatening, Hospitalization)
  Sender: FDA-Public Use
  Company Number: US-MERCK-1208USA003285

PATIENT

DRUGS (4)
  1. TEMOZOLOMIDE [Suspect]
     Dosage: 75 MG/M2, QD
     Route: 048
     Dates: start: 20120723, end: 20120730
  2. ZOLINZA [Suspect]
     Dosage: 300 MG, ON DAYS 1-5, QW
     Route: 048
     Dates: start: 20120723, end: 20120730
  3. ZOLINZA [Suspect]
     Indication: GLIOBLASTOMA MULTIFORME
     Dosage: 300 MG, ON DAYS 1-5, QW
     Route: 048
     Dates: start: 20120702
  4. TEMOZOLOMIDE [Suspect]
     Indication: GLIOBLASTOMA MULTIFORME
     Dosage: 75 MG/M2, QD
     Route: 048
     Dates: start: 20120702

REACTIONS (4)
  - WHITE BLOOD CELL COUNT DECREASED [None]
  - NEUTROPHIL COUNT DECREASED [None]
  - FEBRILE NEUTROPENIA [None]
  - PLATELET COUNT DECREASED [None]
